FAERS Safety Report 7590167-9 (Version None)
Quarter: 2011Q3

REPORT INFORMATION
  Report Type: 
  Country: None (occurrence: None)
  Receive Date: 20110705
  Receipt Date: 20110623
  Transmission Date: 20111222
  Serious: Yes (Hospitalization)
  Sender: FDA-Public Use
  Company Number: DE-SANOFI-AVENTIS-2011SA040436

PATIENT
  Age: 51 Year
  Sex: Female

DRUGS (4)
  1. BEVACIZUMAB [Suspect]
     Route: 042
     Dates: start: 20110224
  2. EFFORTIL [Concomitant]
     Dates: start: 19730101
  3. OXALIPLATIN [Suspect]
     Dosage: DOSE: 100 MG ON DAY 1 AND 8 EVERY THREE WEEKS.
     Route: 042
     Dates: start: 20110223
  4. CAPECITABINE [Suspect]
     Dosage: DOSE: 3000MG ON DAY 1 TO 14 EVERY THREE WEEKS.
     Route: 048
     Dates: start: 20110223

REACTIONS (1)
  - CIRCULATORY COLLAPSE [None]
